FAERS Safety Report 12349524 (Version 2)
Quarter: 2016Q2

REPORT INFORMATION
  Report Type: Spontaneous
  Country: BR (occurrence: BR)
  Receive Date: 20160510
  Receipt Date: 20160617
  Transmission Date: 20160815
  Serious: Yes (Other)
  Sender: FDA-Public Use
  Company Number: BR-ASTRAZENECA-2016SE49226

PATIENT
  Age: 394 Month
  Sex: Female

DRUGS (1)
  1. ATACAND [Suspect]
     Active Substance: CANDESARTAN CILEXETIL
     Indication: BLOOD PRESSURE FLUCTUATION
     Dosage: 0.5DF UNKNOWN
     Route: 048
     Dates: start: 2009, end: 201606

REACTIONS (2)
  - Blood pressure fluctuation [Recovered/Resolved]
  - Drug ineffective [Unknown]

NARRATIVE: CASE EVENT DATE: 201605
